FAERS Safety Report 8134759-7 (Version None)
Quarter: 2012Q1

REPORT INFORMATION
  Report Type: 
  Country: None (occurrence: None)
  Receive Date: 20120210
  Receipt Date: 20120125
  Transmission Date: 20120608
  Serious: Yes (Other)
  Sender: FDA-Public Use
  Company Number: 2012P1003264

PATIENT
  Sex: Male

DRUGS (1)
  1. SOLODYN [Suspect]
     Dosage: 55 MG

REACTIONS (2)
  - DEPRESSION [None]
  - TREMOR [None]
